FAERS Safety Report 25963929 (Version 1)
Quarter: 2025Q4

REPORT INFORMATION
  Report Type: Other
  Country: CA (occurrence: CA)
  Receive Date: 20251027
  Receipt Date: 20251027
  Transmission Date: 20260118
  Serious: Yes (Other)
  Sender: LUPIN
  Company Number: CA-LUPIN PHARMACEUTICALS INC.-2025-09577

PATIENT
  Age: 41 Year
  Sex: Female

DRUGS (110)
  1. PROPRANOLOL [Suspect]
     Active Substance: PROPRANOLOL HYDROCHLORIDE
     Indication: Migraine
     Dosage: UNK
     Route: 065
  2. DEXAMETHASONE [Suspect]
     Active Substance: DEXAMETHASONE
     Indication: Migraine
     Dosage: 1 DF
     Route: 065
  3. DEXAMETHASONE [Suspect]
     Active Substance: DEXAMETHASONE
     Dosage: 1 DF
     Route: 065
  4. DULOXETINE HYDROCHLORIDE [Suspect]
     Active Substance: DULOXETINE HYDROCHLORIDE
     Indication: Migraine
     Dosage: UNK
     Route: 065
  5. ESCITALOPRAM OXALATE [Suspect]
     Active Substance: ESCITALOPRAM OXALATE
     Indication: Migraine
     Dosage: UNK
     Route: 065
  6. FLUCONAZOLE [Suspect]
     Active Substance: FLUCONAZOLE
     Indication: Migraine
     Dosage: 1 DF
     Route: 065
  7. HYDROMORPHONE [Suspect]
     Active Substance: HYDROMORPHONE
     Indication: Migraine
     Dosage: 1 DF
     Route: 065
  8. HYDROMORPHONE [Suspect]
     Active Substance: HYDROMORPHONE
     Dosage: 1 DF
     Route: 065
  9. HYDROMORPHONE [Suspect]
     Active Substance: HYDROMORPHONE
     Dosage: 1 DF
     Route: 065
  10. HYDROMORPHONE [Suspect]
     Active Substance: HYDROMORPHONE
     Dosage: 1 DF
     Route: 065
  11. HYDROMORPHONE [Suspect]
     Active Substance: HYDROMORPHONE
     Dosage: 1 DF
     Route: 065
  12. HYDROMORPHONE [Suspect]
     Active Substance: HYDROMORPHONE
     Dosage: 1 DF
     Route: 065
  13. HYDROMORPHONE [Suspect]
     Active Substance: HYDROMORPHONE
     Dosage: 1 DF
     Route: 065
  14. HYDROMORPHONE [Suspect]
     Active Substance: HYDROMORPHONE
     Dosage: 1 DF
     Route: 065
  15. HYDROMORPHONE [Suspect]
     Active Substance: HYDROMORPHONE
     Dosage: 1 DF
     Route: 065
  16. HYDROMORPHONE [Suspect]
     Active Substance: HYDROMORPHONE
     Dosage: 1 DF
     Route: 065
  17. HYDROMORPHONE [Suspect]
     Active Substance: HYDROMORPHONE
     Dosage: 1 DF
     Route: 065
  18. INDOMETHACIN [Suspect]
     Active Substance: INDOMETHACIN
     Indication: Migraine
     Dosage: 1 DF
  19. LANSOPRAZOLE [Suspect]
     Active Substance: LANSOPRAZOLE
     Indication: Migraine
     Dosage: UNK
     Route: 065
  20. LISINOPRIL [Suspect]
     Active Substance: LISINOPRIL
     Indication: Migraine
     Dosage: 1 DF, QD
  21. RABEPRAZOLE [Suspect]
     Active Substance: RABEPRAZOLE
     Indication: Migraine
     Dosage: 1 DF
     Route: 065
  22. RABEPRAZOLE [Suspect]
     Active Substance: RABEPRAZOLE
     Dosage: 1 DF
     Route: 065
  23. RABEPRAZOLE [Suspect]
     Active Substance: RABEPRAZOLE
     Dosage: 1 DF
     Route: 065
  24. RABEPRAZOLE [Suspect]
     Active Substance: RABEPRAZOLE
     Dosage: 1 DF
     Route: 065
  25. RABEPRAZOLE [Suspect]
     Active Substance: RABEPRAZOLE
     Dosage: 1 DF
     Route: 065
  26. RABEPRAZOLE [Suspect]
     Active Substance: RABEPRAZOLE
     Dosage: 1 DF
     Route: 065
  27. RABEPRAZOLE [Suspect]
     Active Substance: RABEPRAZOLE
     Dosage: 1 DF
     Route: 065
  28. RABEPRAZOLE [Suspect]
     Active Substance: RABEPRAZOLE
     Dosage: 1 DF
     Route: 065
  29. RABEPRAZOLE [Suspect]
     Active Substance: RABEPRAZOLE
     Dosage: 1 DF
     Route: 065
  30. RABEPRAZOLE [Suspect]
     Active Substance: RABEPRAZOLE
     Dosage: 1 DF
     Route: 065
  31. RABEPRAZOLE [Suspect]
     Active Substance: RABEPRAZOLE
     Dosage: 1 DF
     Route: 065
  32. RABEPRAZOLE [Suspect]
     Active Substance: RABEPRAZOLE
     Dosage: 1 DF
     Route: 065
  33. RABEPRAZOLE [Suspect]
     Active Substance: RABEPRAZOLE
     Dosage: 1 DF
     Route: 065
  34. RABEPRAZOLE [Suspect]
     Active Substance: RABEPRAZOLE
     Dosage: 1 DF
     Route: 065
  35. RABEPRAZOLE [Suspect]
     Active Substance: RABEPRAZOLE
     Dosage: 1 DF
     Route: 065
  36. RABEPRAZOLE [Suspect]
     Active Substance: RABEPRAZOLE
     Dosage: 1 DF
     Route: 065
  37. RABEPRAZOLE [Suspect]
     Active Substance: RABEPRAZOLE
     Dosage: 1 DF
     Route: 065
  38. RABEPRAZOLE [Suspect]
     Active Substance: RABEPRAZOLE
     Dosage: 1 DF
     Route: 065
  39. RABEPRAZOLE [Suspect]
     Active Substance: RABEPRAZOLE
     Dosage: 1 DF
     Route: 065
  40. SCOPOLAMINE HYDROBROMIDE [Suspect]
     Active Substance: SCOPOLAMINE HYDROBROMIDE
     Indication: Migraine
     Dosage: UNK
     Route: 065
  41. SUMATRIPTAN SUCCINATE [Suspect]
     Active Substance: SUMATRIPTAN SUCCINATE
     Indication: Migraine
     Dosage: UNK
     Route: 065
  42. SERTRALINE HYDROCHLORIDE [Suspect]
     Active Substance: SERTRALINE HYDROCHLORIDE
     Indication: Migraine
     Dosage: UNK
     Route: 065
  43. TOPIRAMATE [Suspect]
     Active Substance: TOPIRAMATE
     Indication: Migraine
     Dosage: UNK
     Route: 065
  44. ZOPICLONE [Suspect]
     Active Substance: ZOPICLONE
     Indication: Migraine
     Dosage: UNK
     Route: 065
  45. CIPROFLOXACIN HYDROCHLORIDE [Suspect]
     Active Substance: CIPROFLOXACIN HYDROCHLORIDE
     Indication: Migraine
     Dosage: 1 DF
  46. CIPROFLOXACIN HYDROCHLORIDE [Suspect]
     Active Substance: CIPROFLOXACIN HYDROCHLORIDE
     Dosage: 1 DF
  47. ACETAMINOPHEN [Suspect]
     Active Substance: ACETAMINOPHEN
     Indication: Product used for unknown indication
     Dosage: UNK
     Route: 065
  48. AMOXICILLIN TRIHYDRATE [Suspect]
     Active Substance: AMOXICILLIN
     Indication: Product used for unknown indication
     Dosage: 2 DF
     Route: 065
  49. AMOXICILLIN TRIHYDRATE [Suspect]
     Active Substance: AMOXICILLIN
     Dosage: 2 DF
     Route: 065
  50. AZITHROMYCIN DIHYDRATE [Suspect]
     Active Substance: AZITHROMYCIN DIHYDRATE
     Indication: Product used for unknown indication
     Dosage: UNK
     Route: 065
  51. BOTULINUM TOXIN TYPE A [Suspect]
     Active Substance: BOTULINUM TOXIN TYPE A
     Indication: Product used for unknown indication
     Dosage: POWDER FOR SOLUTION
     Route: 065
  52. BOTULINUM TOXIN TYPE A [Suspect]
     Active Substance: BOTULINUM TOXIN TYPE A
     Dosage: UNK
     Route: 065
  53. BOTULINUM TOXIN TYPE A [Suspect]
     Active Substance: BOTULINUM TOXIN TYPE A
     Dosage: UNK
     Route: 065
  54. BOTULINUM TOXIN TYPE A [Suspect]
     Active Substance: BOTULINUM TOXIN TYPE A
     Dosage: UNK
     Route: 065
  55. BOTULINUM TOXIN TYPE A [Suspect]
     Active Substance: BOTULINUM TOXIN TYPE A
     Dosage: UNK
     Route: 065
  56. BOTULINUM TOXIN TYPE A [Suspect]
     Active Substance: BOTULINUM TOXIN TYPE A
     Dosage: UNK
     Route: 065
  57. CLARITHROMYCIN [Suspect]
     Active Substance: CLARITHROMYCIN
     Indication: Product used for unknown indication
     Dosage: 1 DF
     Route: 065
  58. CODEINE [Suspect]
     Active Substance: CODEINE
     Indication: Product used for unknown indication
     Dosage: UNK
     Route: 065
  59. ESOMEPRAZOLE [Suspect]
     Active Substance: ESOMEPRAZOLE
     Indication: Product used for unknown indication
     Dosage: UNK
  60. METOCLOPRAMIDE [Suspect]
     Active Substance: METOCLOPRAMIDE
     Indication: Product used for unknown indication
     Dosage: UNK
     Route: 065
  61. MOMETASONE FUROATE [Suspect]
     Active Substance: MOMETASONE FUROATE
     Indication: Product used for unknown indication
     Dosage: 2 DF
     Route: 065
  62. MOMETASONE FUROATE [Suspect]
     Active Substance: MOMETASONE FUROATE
     Dosage: 2 DF
     Route: 065
  63. MOMETASONE FUROATE [Suspect]
     Active Substance: MOMETASONE FUROATE
     Dosage: 2 DF
     Route: 065
  64. PEDIAPRED [Suspect]
     Active Substance: PREDNISOLONE SODIUM PHOSPHATE
     Indication: Product used for unknown indication
     Dosage: 2 DF, QD
     Route: 065
  65. RIZATRIPTAN BENZOATE [Suspect]
     Active Substance: RIZATRIPTAN BENZOATE
     Indication: Product used for unknown indication
     Dosage: 1 DF, QD
     Route: 065
  66. ALBUTEROL [Suspect]
     Active Substance: ALBUTEROL
     Indication: Product used for unknown indication
     Dosage: 4 DF, QD
     Route: 065
  67. ALBUTEROL [Suspect]
     Active Substance: ALBUTEROL
     Dosage: UNK
     Route: 065
  68. TRAMADOL HYDROCHLORIDE [Suspect]
     Active Substance: TRAMADOL HYDROCHLORIDE
     Indication: Product used for unknown indication
     Dosage: UNK
     Route: 065
  69. TRIMETHOPRIM [Suspect]
     Active Substance: TRIMETHOPRIM
     Indication: Product used for unknown indication
     Dosage: UNK
     Route: 065
  70. VENLAFAXINE HYDROCHLORIDE [Suspect]
     Active Substance: VENLAFAXINE HYDROCHLORIDE
     Indication: Product used for unknown indication
     Dosage: UNK
     Route: 065
  71. ZOLMITRIPTAN [Suspect]
     Active Substance: ZOLMITRIPTAN
     Indication: Product used for unknown indication
     Dosage: 1 DF, QD
     Route: 065
  72. ZOLMITRIPTAN [Suspect]
     Active Substance: ZOLMITRIPTAN
     Dosage: 1 DF, QD
     Route: 065
  73. ZOLMITRIPTAN [Suspect]
     Active Substance: ZOLMITRIPTAN
     Dosage: 1 DF, QD
     Route: 065
  74. ZOLMITRIPTAN [Suspect]
     Active Substance: ZOLMITRIPTAN
     Dosage: 1 DF, QD
     Route: 065
  75. ZOLMITRIPTAN [Suspect]
     Active Substance: ZOLMITRIPTAN
     Dosage: 1 DF, QD
     Route: 065
  76. ZOLMITRIPTAN [Suspect]
     Active Substance: ZOLMITRIPTAN
     Dosage: 1 DF, QD
     Route: 065
  77. ZOLMITRIPTAN [Suspect]
     Active Substance: ZOLMITRIPTAN
     Dosage: 1 DF, QD
     Route: 065
  78. ZOLMITRIPTAN [Suspect]
     Active Substance: ZOLMITRIPTAN
     Dosage: 1 DF, QD
     Route: 065
  79. ZOLMITRIPTAN [Suspect]
     Active Substance: ZOLMITRIPTAN
     Dosage: 1 DF, QD
     Route: 065
  80. ZOLMITRIPTAN [Suspect]
     Active Substance: ZOLMITRIPTAN
     Dosage: 1 DF, QD
     Route: 065
  81. ZOLMITRIPTAN [Suspect]
     Active Substance: ZOLMITRIPTAN
     Dosage: 1 DF, QD
     Route: 065
  82. ZOLMITRIPTAN [Suspect]
     Active Substance: ZOLMITRIPTAN
     Dosage: 1 DF, QD
     Route: 065
  83. ZOLMITRIPTAN [Suspect]
     Active Substance: ZOLMITRIPTAN
     Dosage: 1 DF, QD
     Route: 065
  84. ZOLMITRIPTAN [Suspect]
     Active Substance: ZOLMITRIPTAN
     Dosage: 1 DF, QD
     Route: 065
  85. ZOLMITRIPTAN [Suspect]
     Active Substance: ZOLMITRIPTAN
     Dosage: 1 DF, QD
     Route: 065
  86. ZOLMITRIPTAN [Suspect]
     Active Substance: ZOLMITRIPTAN
     Dosage: 1 DF, QD
     Route: 065
  87. ZOLMITRIPTAN [Suspect]
     Active Substance: ZOLMITRIPTAN
     Dosage: 1 DF, QD
     Route: 065
  88. ZOLMITRIPTAN [Suspect]
     Active Substance: ZOLMITRIPTAN
     Dosage: 1 DF, QD
     Route: 065
  89. ZOLMITRIPTAN [Suspect]
     Active Substance: ZOLMITRIPTAN
     Dosage: 1 DF, QD
     Route: 065
  90. ZOLMITRIPTAN [Suspect]
     Active Substance: ZOLMITRIPTAN
     Dosage: 1 DF, QD
     Route: 065
  91. ZOLMITRIPTAN [Suspect]
     Active Substance: ZOLMITRIPTAN
     Dosage: 1 DF, QD (TABLETS)
     Route: 065
  92. ZOLMITRIPTAN [Suspect]
     Active Substance: ZOLMITRIPTAN
     Dosage: 1 DF, QD
     Route: 065
  93. PANTOPRAZOLE SODIUM ANHYDROUS [Concomitant]
     Active Substance: PANTOPRAZOLE SODIUM ANHYDROUS
     Indication: Product used for unknown indication
     Dosage: UNK
     Route: 065
  94. CAFFEINE CITRATE [Concomitant]
     Active Substance: CAFFEINE CITRATE
     Indication: Product used for unknown indication
     Dosage: UNK
     Route: 065
  95. CEFUROXIME SODIUM [Concomitant]
     Active Substance: CEFUROXIME SODIUM
     Indication: Product used for unknown indication
     Dosage: UNK
     Route: 065
  96. CEPHALEXIN [Concomitant]
     Active Substance: CEPHALEXIN
     Indication: Product used for unknown indication
     Dosage: UNK
     Route: 065
  97. DANAZOL [Concomitant]
     Active Substance: DANAZOL
     Indication: Product used for unknown indication
     Dosage: UNK
     Route: 065
  98. CYMBALTA [Concomitant]
     Active Substance: DULOXETINE HYDROCHLORIDE
     Indication: Product used for unknown indication
     Dosage: UNK
     Route: 065
  99. FERROUS FUMARATE [Concomitant]
     Active Substance: FERROUS FUMARATE
     Indication: Product used for unknown indication
     Dosage: UNK
     Route: 065
  100. FLUOXETINE HYDROCHLORIDE [Concomitant]
     Active Substance: FLUOXETINE HYDROCHLORIDE
     Indication: Product used for unknown indication
     Dosage: UNK
     Route: 065
  101. FLUTICASONE [Concomitant]
     Active Substance: FLUTICASONE
     Indication: Product used for unknown indication
     Dosage: UNK
     Route: 065
  102. FROVATRIPTAN SUCCINATE [Concomitant]
     Active Substance: FROVATRIPTAN SUCCINATE
     Indication: Product used for unknown indication
     Dosage: UNK
     Route: 065
  103. MACROBID [Concomitant]
     Active Substance: NITROFURANTOIN\NITROFURANTOIN MONOHYDRATE
     Indication: Product used for unknown indication
     Dosage: UNK
     Route: 065
  104. POLYETHYLENE GLYCOLS [Concomitant]
     Active Substance: POLYETHYLENE GLYCOLS
     Indication: Product used for unknown indication
     Dosage: UNK
     Route: 065
  105. METOCLOPRAMIDE [Concomitant]
     Active Substance: METOCLOPRAMIDE
     Indication: Product used for unknown indication
     Dosage: UNK
     Route: 065
  106. METRONIDAZOLE [Concomitant]
     Active Substance: METRONIDAZOLE
     Indication: Product used for unknown indication
     Dosage: UNK
     Route: 065
  107. MORPHINE SULFATE [Concomitant]
     Active Substance: MORPHINE SULFATE
     Indication: Product used for unknown indication
     Dosage: UNK
     Route: 065
  108. NAPROXEN [Concomitant]
     Active Substance: NAPROXEN
     Indication: Product used for unknown indication
     Dosage: UNK
     Route: 065
  109. OSELTAMIVIR [Concomitant]
     Active Substance: OSELTAMIVIR
     Indication: Product used for unknown indication
     Dosage: UNK
     Route: 065
  110. SULFATRIM [Concomitant]
     Active Substance: SULFAMETHOXAZOLE\TRIMETHOPRIM
     Indication: Product used for unknown indication
     Dosage: UNK
     Route: 065

REACTIONS (9)
  - Angioedema [Unknown]
  - Drug intolerance [Unknown]
  - Dysphonia [Unknown]
  - Headache [Unknown]
  - Hypersensitivity [Unknown]
  - Off label use [Unknown]
  - Swelling face [Unknown]
  - Swollen tongue [Unknown]
  - Drug ineffective for unapproved indication [Unknown]
